FAERS Safety Report 4627469-1 (Version None)
Quarter: 2005Q2

REPORT INFORMATION
  Report Type: 
  Country: None (occurrence: None)
  Receive Date: 20050405
  Receipt Date: 20050329
  Transmission Date: 20051028
  Serious: Yes (Other)
  Sender: FDA-Public Use
  Company Number: 2005051176

PATIENT
  Sex: Male
  Weight: 81.6475 kg

DRUGS (3)
  1. LIPITOR [Suspect]
     Indication: BLOOD CHOLESTEROL INCREASED
     Dosage: 20 MG (20 MG, 1 IN 1 D)
     Dates: start: 20040101
  2. ASPIRIN [Concomitant]
  3. METOPROLOL SUCCINATE (METOPROLOL SUCCINATE0 [Concomitant]

REACTIONS (3)
  - DYSGEUSIA [None]
  - TRIPLE VESSEL BYPASS GRAFT [None]
  - WEIGHT DECREASED [None]
